FAERS Safety Report 5395454-0 (Version None)
Quarter: 2007Q3

REPORT INFORMATION
  Report Type: 
  Country: None (occurrence: None)
  Receive Date: 20070724
  Receipt Date: 20070720
  Transmission Date: 20080115
  Serious: Yes (Hospitalization)
  Sender: FDA-Public Use
  Company Number: A0665606A

PATIENT
  Age: 26 Year
  Sex: Male
  Weight: 55 kg

DRUGS (7)
  1. SERETIDE [Suspect]
     Indication: ASTHMA
     Route: 055
     Dates: start: 20020101
  2. BUDESONIDE [Concomitant]
     Dates: start: 20020101
  3. SALBUTAMOL [Concomitant]
     Dates: start: 20020101
  4. PROMETHAZINE [Concomitant]
     Dates: start: 19920101
  5. BEROTEC [Concomitant]
     Dates: start: 20020101
  6. ATROVENT [Concomitant]
  7. UNSPECIFIED MEDICATION [Concomitant]

REACTIONS (8)
  - ANOREXIA [None]
  - APATHY [None]
  - ASTHMATIC CRISIS [None]
  - DEPRESSION [None]
  - DRUG INEFFECTIVE [None]
  - HEADACHE [None]
  - PYREXIA [None]
  - THROMBOCYTOPENIA [None]
